FAERS Safety Report 13921376 (Version 2)
Quarter: 2017Q3

REPORT INFORMATION
  Report Type: Spontaneous
  Country: RU (occurrence: RU)
  Receive Date: 20170830
  Receipt Date: 20170926
  Transmission Date: 20171127
  Serious: Yes (Other)
  Sender: FDA-Public Use
  Company Number: RU-SA-2017SA154424

PATIENT
  Sex: Female

DRUGS (1)
  1. APROVEL [Suspect]
     Active Substance: IRBESARTAN
     Route: 048

REACTIONS (6)
  - Myocardial infarction [Unknown]
  - Suspected counterfeit product [Unknown]
  - Product quality issue [Unknown]
  - Drug ineffective [Unknown]
  - Drug administration error [Unknown]
  - Wrong technique in product usage process [Unknown]
